FAERS Safety Report 23827185 (Version 3)
Quarter: 2024Q2

REPORT INFORMATION
  Report Type: Report from Study
  Country: TR (occurrence: TR)
  Receive Date: 20240507
  Receipt Date: 20240608
  Transmission Date: 20240716
  Serious: Yes (Hospitalization)
  Sender: FDA-Public Use
  Company Number: TR-ABBVIE-5745679

PATIENT
  Sex: Female
  Weight: 86 kg

DRUGS (8)
  1. CARBIDOPA\LEVODOPA [Suspect]
     Active Substance: CARBIDOPA\LEVODOPA
     Indication: Parkinson^s disease
     Dosage: MORNING DOSE (ML): 8.50 CONTINUOUS DOSE (ML): 3.90 EXTRA DOSE (ML): 2.00
     Route: 050
     Dates: start: 20220922
  2. CARBIDOPA\LEVODOPA [Suspect]
     Active Substance: CARBIDOPA\LEVODOPA
  3. CYANOCOBALAMIN [Concomitant]
     Active Substance: CYANOCOBALAMIN
     Indication: Dementia
     Dosage: FORM STRENGTH: 1000 MILLIGRAM/MILLILITERS?(VITAMIN B12 CYANOCOBALAMIN (DODEX AMP))
     Route: 030
     Dates: start: 20240501, end: 20240506
  4. DOPADEX SR [Concomitant]
     Indication: Parkinson^s disease
     Dosage: 50/200 MG
     Route: 048
     Dates: start: 2020
  5. AMANTADINE SULFATE [Concomitant]
     Active Substance: AMANTADINE SULFATE
     Indication: Parkinson^s disease
     Dosage: 400 MILLIGRAM, FORM STRENGTH: 100 MILLIGRAM, FREQUENCY TEXT: 2X2
     Route: 048
     Dates: start: 2015
  6. VITAMIN B COMPLEX [Concomitant]
     Active Substance: CYANOCOBALAMIN\DEXPANTHENOL\NIACINAMIDE\PYRIDOXINE HYDROCHLORIDE\RIBOFLAVIN 5^-PHOSPHATE SODIUM\THIA
     Indication: Dementia
     Dosage: FORM STRENGTH: 2 MILLILITRE(S)
     Route: 042
     Dates: start: 20240501, end: 20240506
  7. ESCITALOPRAM OXALATE [Concomitant]
     Active Substance: ESCITALOPRAM OXALATE
     Indication: Depression
     Dosage: FORM STRENGTH: 20 MILLIGRAM
     Route: 048
     Dates: start: 2020
  8. CYANOCOBALAMIN\PYRIDOXINE HYDROCHLORIDE\THIAMINE [Concomitant]
     Active Substance: CYANOCOBALAMIN\PYRIDOXINE HYDROCHLORIDE\THIAMINE
     Indication: Dementia
     Dosage: FORM STRENGTH: 250 MILLIGRAM
     Route: 048
     Dates: start: 20240506

REACTIONS (1)
  - Dementia [Recovering/Resolving]
